FAERS Safety Report 22057726 (Version 3)
Quarter: 2023Q2

REPORT INFORMATION
  Report Type: Report from Study
  Country: US (occurrence: US)
  Receive Date: 20230303
  Receipt Date: 20230614
  Transmission Date: 20230722
  Serious: Yes (Hospitalization, Other)
  Sender: FDA-Public Use
  Company Number: US-VALIDUS PHARMACEUTICALS LLC-US-VDP-2023-015969

PATIENT

DRUGS (3)
  1. LASIX [Suspect]
     Active Substance: FUROSEMIDE
     Indication: Incontinence
     Dosage: UNK
     Route: 065
  2. OFEV [Suspect]
     Active Substance: NINTEDANIB
     Indication: Idiopathic pulmonary fibrosis
     Dosage: 300 MILLIGRAM, QD
     Route: 048
     Dates: start: 20220816, end: 2022
  3. IMODIUM [Suspect]
     Active Substance: LOPERAMIDE HYDROCHLORIDE
     Indication: Product used for unknown indication
     Dosage: UNK
     Route: 065

REACTIONS (17)
  - Dehydration [Unknown]
  - Right ventricular failure [Unknown]
  - Pulmonary oedema [Unknown]
  - Idiopathic pulmonary fibrosis [Unknown]
  - COVID-19 [Not Recovered/Not Resolved]
  - Constipation [Unknown]
  - Blood glucose abnormal [Unknown]
  - Fatigue [Unknown]
  - Bradyphrenia [Unknown]
  - Memory impairment [Unknown]
  - Gait disturbance [Unknown]
  - Defaecation urgency [Unknown]
  - Catheter site pain [Unknown]
  - Incontinence [Unknown]
  - Asthenia [Unknown]
  - Diarrhoea [Unknown]
  - Rash [Recovering/Resolving]

NARRATIVE: CASE EVENT DATE: 20220101
